FAERS Safety Report 13675913 (Version 1)
Quarter: 2017Q2

REPORT INFORMATION
  Report Type: Spontaneous
  Country: US (occurrence: US)
  Receive Date: 20170620
  Receipt Date: 20170620
  Transmission Date: 20170830
  Serious: No
  Sender: FDA-Public Use
  Company Number: None

PATIENT
  Age: 67 Year
  Sex: Female
  Weight: 70.65 kg

DRUGS (4)
  1. CITRACAL [Concomitant]
     Active Substance: CALCIUM CITRATE
  2. ESOMEPRAZOLE DR [Suspect]
     Active Substance: ESOMEPRAZOLE
     Indication: ULCER
     Dosage: ?          QUANTITY:1 CAPSULE(S);?
     Route: 048
     Dates: start: 20170517, end: 20170529
  3. FOLIC ACID. [Concomitant]
     Active Substance: FOLIC ACID
  4. ACYCLOVIR. [Concomitant]
     Active Substance: ACYCLOVIR

REACTIONS (3)
  - Blood pressure increased [None]
  - Headache [None]
  - Therapy cessation [None]

NARRATIVE: CASE EVENT DATE: 20170517
